FAERS Safety Report 17420403 (Version 2)
Quarter: 2020Q1

REPORT INFORMATION
  Report Type: Report from Study
  Country: IT (occurrence: IT)
  Receive Date: 20200214
  Receipt Date: 20200318
  Transmission Date: 20200409
  Serious: Yes (Hospitalization, Other)
  Sender: FDA-Public Use
  Company Number: IT-BRISTOL-MYERS SQUIBB COMPANY-BMS-2020-011342

PATIENT
  Age: 72 Year
  Sex: Female

DRUGS (2)
  1. LENIZAK [Suspect]
     Active Substance: DEXKETOPROFEN\TRAMADOL
     Indication: PAIN IN EXTREMITY
     Dosage: 1 DOSAGE FORM DAILY
     Route: 048
     Dates: start: 20200103, end: 20200107
  2. APIXABAN [Suspect]
     Active Substance: APIXABAN
     Indication: CEREBROVASCULAR ACCIDENT PROPHYLAXIS
     Dosage: 10 MILLIGRAM DAILY
     Route: 048
     Dates: start: 20150507, end: 20200107

REACTIONS (5)
  - Anaemia [Recovering/Resolving]
  - Hypotension [Recovering/Resolving]
  - Drug interaction [Recovering/Resolving]
  - Gastric ulcer haemorrhage [Recovering/Resolving]
  - Melaena [Recovering/Resolving]

NARRATIVE: CASE EVENT DATE: 20200105
